FAERS Safety Report 9935995 (Version 1)
Quarter: 2014Q1

REPORT INFORMATION
  Report Type: Spontaneous
  Country: US (occurrence: US)
  Receive Date: 20140228
  Receipt Date: 20140228
  Transmission Date: 20141002
  Serious: No
  Sender: FDA-Public Use
  Company Number: US-GILEAD-2013-0070763

PATIENT
  Age: 50 Year
  Sex: Female

DRUGS (1)
  1. STRIBILD [Suspect]
     Indication: HIV INFECTION

REACTIONS (1)
  - Nausea [Unknown]
